FAERS Safety Report 9761650 (Version 2)
Quarter: 2013Q4

REPORT INFORMATION
  Report Type: Spontaneous
  Country: DK (occurrence: DK)
  Receive Date: 20131216
  Receipt Date: 20131216
  Transmission Date: 20140711
  Serious: Yes (Disabling)
  Sender: FDA-Public Use
  Company Number: DK-GE HEALTHCARE MEDICAL DIAGNOSTICS-OSCN-NO-0912S-0531

PATIENT
  Age: 58 Year
  Sex: Male
  Weight: 73 kg

DRUGS (3)
  1. OMNISCAN [Suspect]
     Indication: RENAL TRANSPLANT
     Route: 042
     Dates: start: 20020607, end: 20020607
  2. DOTAREM [Concomitant]
     Route: 065
     Dates: start: 20060505, end: 20060505
  3. DOTAREM [Concomitant]
     Route: 065
     Dates: start: 20060622, end: 20060622

REACTIONS (1)
  - Nephrogenic systemic fibrosis [Not Recovered/Not Resolved]
